FAERS Safety Report 7337169-5 (Version None)
Quarter: 2011Q1

REPORT INFORMATION
  Report Type: 
  Country: None (occurrence: None)
  Receive Date: 20110308
  Receipt Date: 20110302
  Transmission Date: 20110831
  Serious: Yes (Other)
  Sender: FDA-Public Use
  Company Number: US-PFIZER INC-2010175755

PATIENT
  Sex: Female

DRUGS (3)
  1. CHANTIX [Suspect]
     Dosage: UNK
     Dates: start: 20080201, end: 20080201
  2. ADVAIR DISKUS 100/50 [Concomitant]
     Indication: CHRONIC OBSTRUCTIVE PULMONARY DISEASE
     Dosage: UNK
     Dates: start: 20050101
  3. CHANTIX [Suspect]
     Indication: SMOKING CESSATION THERAPY
     Dosage: UNK
     Dates: start: 20070201, end: 20070301

REACTIONS (7)
  - LOSS OF CONSCIOUSNESS [None]
  - ANXIETY [None]
  - AGGRESSION [None]
  - DEPRESSION [None]
  - AGITATION [None]
  - MENTAL DISORDER [None]
  - NIGHTMARE [None]
